FAERS Safety Report 4846154-4 (Version None)
Quarter: 2005Q4

REPORT INFORMATION
  Report Type: 
  Country: None (occurrence: None)
  Receive Date: 20051206
  Receipt Date: 20051122
  Transmission Date: 20060501
  Serious: Yes (Other)
  Sender: FDA-Public Use
  Company Number: US-MERCK-0511USA03773

PATIENT
  Age: 62 Year
  Sex: Female

DRUGS (2)
  1. FOSAMAX [Suspect]
     Indication: OSTEOPOROSIS
     Route: 048
     Dates: start: 20051112, end: 20051112
  2. ARIMIDEX [Concomitant]
     Route: 065
     Dates: end: 20051108

REACTIONS (4)
  - BLINDNESS UNILATERAL [None]
  - EYE PAIN [None]
  - EYE PRURITUS [None]
  - VISUAL ACUITY REDUCED [None]
